FAERS Safety Report 6217702-7 (Version None)
Quarter: 2009Q2

REPORT INFORMATION
  Report Type: 
  Country: None (occurrence: None)
  Receive Date: 20090604
  Receipt Date: 20090604
  Transmission Date: 20091009
  Serious: Yes (Hospitalization)
  Sender: FDA-Public Use
  Company Number: None

PATIENT
  Age: 47 Year
  Sex: Male
  Weight: 76.2043 kg

DRUGS (13)
  1. SORAFENIB [Suspect]
     Indication: METASTASES TO CENTRAL NERVOUS SYSTEM
     Dosage: 200MG BID
     Dates: start: 20080813, end: 20080923
  2. XANAX [Concomitant]
  3. CELEXA [Concomitant]
  4. COLACE [Concomitant]
  5. COMBIVENT [Concomitant]
  6. MULTI-VITAMIN [Concomitant]
  7. NICODERM [Concomitant]
  8. OXYCONTIN [Concomitant]
  9. OXYCODONE [Concomitant]
  10. PHENOBARBITAL TAB [Concomitant]
  11. DILANTIN [Concomitant]
  12. SENNA [Concomitant]
  13. TRAZODONE HCL [Concomitant]

REACTIONS (4)
  - CHEST PAIN [None]
  - CHRONIC OBSTRUCTIVE PULMONARY DISEASE [None]
  - CONDITION AGGRAVATED [None]
  - PNEUMONIA [None]
